FAERS Safety Report 23312306 (Version 2)
Quarter: 2023Q4

REPORT INFORMATION
  Report Type: Spontaneous
  Country: DE (occurrence: None)
  Receive Date: 20231219
  Receipt Date: 20231220
  Transmission Date: 20240110
  Serious: No
  Sender: FDA-Public Use
  Company Number: 2023A285508

PATIENT
  Sex: Male

DRUGS (1)
  1. CALQUENCE [Suspect]
     Active Substance: ACALABRUTINIB
     Route: 048

REACTIONS (10)
  - Abdominal discomfort [Unknown]
  - Appetite disorder [Unknown]
  - Insomnia [Unknown]
  - Drug intolerance [Unknown]
  - Decreased activity [Unknown]
  - Poor quality sleep [Unknown]
  - Initial insomnia [Unknown]
  - Abdominal pain upper [Unknown]
  - Fatigue [Unknown]
  - Myalgia [Unknown]
